FAERS Safety Report 9153601 (Version 1)
Quarter: 2013Q1

REPORT INFORMATION
  Report Type: Spontaneous
  Country: US (occurrence: None)
  Receive Date: 20130306
  Receipt Date: 20130306
  Transmission Date: 20140127
  Serious: Yes (Hospitalization)
  Sender: FDA-Public Use
  Company Number: None

PATIENT
  Age: 90 Year
  Sex: Female
  Weight: 50 kg

DRUGS (9)
  1. DIGOXIN [Suspect]
     Dosage: 0.25MG PO PRIOR TO ADMISSION
     Route: 048
  2. ALLOPURMOL [Concomitant]
  3. NORVASC [Concomitant]
  4. TENORMIN [Concomitant]
  5. ARICEPT [Concomitant]
  6. HYDROCHLOROTHIRZINE [Concomitant]
  7. SYNTHROID [Concomitant]
  8. LOPRESSOR [Concomitant]
  9. POTASSIUM [Concomitant]

REACTIONS (5)
  - Nausea [None]
  - Vomiting [None]
  - Dizziness [None]
  - Heart rate decreased [None]
  - Cardioactive drug level increased [None]
